FAERS Safety Report 8876727 (Version 1)
Quarter: 2012Q4

REPORT INFORMATION
  Report Type: 
  Country: US (occurrence: US)
  Receive Date: 20121029
  Receipt Date: 20121029
  Transmission Date: 20130627
  Serious: Yes (Hospitalization)
  Sender: FDA-Public Use
  Company Number: US-ROCHE-1144723

PATIENT
  Age: 43 Year
  Sex: Female

DRUGS (1)
  1. PEGASYS [Suspect]
     Indication: PRODUCT USED FOR UNKNOWN INDICATION
     Route: 058
     Dates: start: 20120920, end: 20121014

REACTIONS (2)
  - Fatigue [Unknown]
  - Psychogenic seizure [Unknown]
